FAERS Safety Report 6273129-3 (Version None)
Quarter: 2009Q3

REPORT INFORMATION
  Report Type: 
  Country: None (occurrence: None)
  Receive Date: 20090715
  Receipt Date: 20090715
  Transmission Date: 20100115
  Serious: Yes (Other)
  Sender: FDA-Public Use
  Company Number: None

PATIENT
  Age: 66 Year
  Sex: Male
  Weight: 104.5 kg

DRUGS (2)
  1. HYTRIN [Suspect]
     Indication: HYPERTENSION
     Dosage: 1 MG 1 OR 2 CAPS/DAY MOUTH
     Route: 048
     Dates: start: 20090714
  2. PRAVACHOL [Suspect]
     Indication: BLOOD CHOLESTEROL INCREASED
     Dosage: 40 MG 1 TAB AT BEDTIME MOUTH
     Route: 048
     Dates: start: 20090714

REACTIONS (4)
  - CIRCUMSTANCE OR INFORMATION CAPABLE OF LEADING TO MEDICATION ERROR [None]
  - DRUG INEFFECTIVE [None]
  - DRUG LABEL CONFUSION [None]
  - UNEVALUABLE EVENT [None]
